FAERS Safety Report 10258639 (Version 1)
Quarter: 2014Q2

REPORT INFORMATION
  Report Type: Spontaneous
  Country: US (occurrence: None)
  Receive Date: 20140623
  Receipt Date: 20140623
  Transmission Date: 20141212
  Serious: Yes (Other)
  Sender: FDA-Public Use
  Company Number: A1077486A

PATIENT
  Age: 68 Year
  Sex: Male

DRUGS (1)
  1. PRAMOXINE [Suspect]
     Indication: PRURITUS
     Route: 061

REACTIONS (5)
  - Hypersensitivity [None]
  - Respiratory arrest [None]
  - Pruritus generalised [None]
  - Dyspnoea [None]
  - Apparent death [None]
